FAERS Safety Report 15041520 (Version 7)
Quarter: 2019Q4

REPORT INFORMATION
  Report Type: Report from Study
  Country: CA (occurrence: CA)
  Receive Date: 20180621
  Receipt Date: 20191205
  Transmission Date: 20200122
  Serious: Yes (Other)
  Sender: FDA-Public Use
  Company Number: CA-ROCHE-2039924

PATIENT
  Age: 40 Year
  Sex: Female
  Weight: 79 kg

DRUGS (6)
  1. ACETAMINOPHENE [Concomitant]
     Active Substance: ACETAMINOPHEN
     Indication: PREMEDICATION
     Route: 048
  2. OCREVUS [Suspect]
     Active Substance: OCRELIZUMAB
     Route: 042
  3. OCREVUS [Suspect]
     Active Substance: OCRELIZUMAB
     Dosage: FIRST DOSE300 MG DAY 0 AND DAY 14, THEN 600 MG EVERY 6 MONTHS.?IT WAS REPORTED THAT SHE RECEIVED HER
     Route: 042
     Dates: start: 20171221
  4. OCREVUS [Suspect]
     Active Substance: OCRELIZUMAB
     Indication: RELAPSING-REMITTING MULTIPLE SCLEROSIS
     Dosage: FIRST DOSE300 MG DAY 0 AND DAY 14, THEN 600 MG EVERY 6 MONTHS.?IT WAS REPORTED THAT SHE RECEIVED HER
     Route: 042
     Dates: start: 20171208
  5. NORMAL SALINE [Concomitant]
     Active Substance: SODIUM CHLORIDE
  6. SOLU-MEDROL [Concomitant]
     Active Substance: METHYLPREDNISOLONE SODIUM SUCCINATE
     Indication: PREMEDICATION
     Route: 042

REACTIONS (7)
  - Infusion related reaction [Recovered/Resolved]
  - Asthenia [Not Recovered/Not Resolved]
  - Wound infection [Recovered/Resolved]
  - Fatigue [Recovering/Resolving]
  - Breast abscess [Recovered/Resolved]
  - Acne [Not Recovered/Not Resolved]
  - Malaise [Not Recovered/Not Resolved]

NARRATIVE: CASE EVENT DATE: 20171208
